FAERS Safety Report 9674892 (Version 2)
Quarter: 2013Q4

REPORT INFORMATION
  Report Type: Report from Study
  Country: CA (occurrence: CA)
  Receive Date: 20131107
  Receipt Date: 20131107
  Transmission Date: 20140711
  Serious: Yes (Other)
  Sender: FDA-Public Use
  Company Number: PHHY2013CA120078

PATIENT
  Age: 54 Year
  Sex: Female

DRUGS (4)
  1. ACLASTA [Suspect]
     Indication: OSTEOPENIA
     Dosage: UNK UKN, UNK
     Route: 042
     Dates: start: 20121130
  2. ABILIFY [Concomitant]
     Dosage: UNK UKN, UNK
  3. SUBLIMAX [Concomitant]
     Dosage: UNK UKN, UNK
  4. CYMBALTA [Concomitant]
     Dosage: UNK UKN, UNK

REACTIONS (2)
  - Bone loss [Not Recovered/Not Resolved]
  - Anxiety [Unknown]
